FAERS Safety Report 9172562 (Version 1)
Quarter: 2012Q4

REPORT INFORMATION
  Report Type: 
  Country: GB (occurrence: GB)
  Receive Date: 20120911
  Receipt Date: 20120911
  Transmission Date: 20130627
  Serious: Yes (Hospitalization)
  Sender: FDA-Public Use
  Company Number: PHHY2012GB078287

PATIENT
  Age: 60 Year
  Sex: Male
  Weight: 92.3 kg

DRUGS (3)
  1. CISPLATIN [Suspect]
     Indication: GASTRIC CANCER
     Dosage: 130 mg
     Route: 042
     Dates: start: 20120515
  2. CAPECITABINE [Suspect]
     Indication: GASTRIC CANCER
     Dosage: 1300 mg
     Route: 048
     Dates: start: 20120515
  3. EPIRUBICIN [Suspect]
     Indication: GASTRIC CANCER
     Dosage: 105 mg
     Route: 042
     Dates: start: 20120515

REACTIONS (3)
  - Deep vein thrombosis [Unknown]
  - Oedema peripheral [Recovered/Resolved]
  - Pain in extremity [Unknown]
